FAERS Safety Report 22664338 (Version 4)
Quarter: 2024Q3

REPORT INFORMATION
  Report Type: Spontaneous
  Country: US (occurrence: US)
  Receive Date: 20230703
  Receipt Date: 20240710
  Transmission Date: 20241016
  Serious: No
  Sender: PFIZER
  Company Number: US-PFIZER INC-PV202300112661

PATIENT
  Age: 79 Year
  Sex: Female
  Weight: 63.492 kg

DRUGS (1)
  1. IBRANCE [Suspect]
     Active Substance: PALBOCICLIB
     Indication: Neoplasm malignant
     Dosage: 100 MG, 1X/DAY
     Dates: start: 20230605

REACTIONS (1)
  - Hypoacusis [Unknown]
